FAERS Safety Report 25825896 (Version 1)
Quarter: 2025Q3

REPORT INFORMATION
  Report Type: Spontaneous
  Country: US (occurrence: US)
  Receive Date: 20250919
  Receipt Date: 20250919
  Transmission Date: 20251020
  Serious: Yes (Death, Other)
  Sender: MALLINCKRODT
  Company Number: US-MALLINCKRODT-MNK202505797

PATIENT
  Sex: Male

DRUGS (1)
  1. NITRIC OXIDE [Suspect]
     Active Substance: NITRIC OXIDE
     Indication: Premature baby
     Route: 055
     Dates: start: 20250911, end: 20250912

REACTIONS (6)
  - Premature baby [Fatal]
  - Condition aggravated [Fatal]
  - Cardiac arrest [Unknown]
  - Oxygen saturation decreased [Unknown]
  - Product use issue [Unknown]
  - Product use in unapproved indication [Unknown]

NARRATIVE: CASE EVENT DATE: 20250911
